FAERS Safety Report 7346771-6 (Version None)
Quarter: 2011Q1

REPORT INFORMATION
  Report Type: 
  Country: None (occurrence: None)
  Receive Date: 20110311
  Receipt Date: 20110304
  Transmission Date: 20110831
  Serious: Yes (Other)
  Sender: FDA-Public Use
  Company Number: US-JNJFOC-20110303629

PATIENT
  Sex: Female
  Weight: 64.86 kg

DRUGS (11)
  1. HYDROXYCHLOR [Concomitant]
     Indication: RHEUMATOID ARTHRITIS
     Route: 048
  2. LISINOPRIL [Concomitant]
     Indication: BLOOD PRESSURE
     Route: 048
  3. AMITRIPTYLINE [Concomitant]
     Indication: SLEEP DISORDER
     Route: 048
  4. SEROQUEL [Concomitant]
     Indication: SLEEP DISORDER
     Route: 048
  5. LOVASTATIN [Concomitant]
     Indication: BLOOD CHOLESTEROL
     Dosage: 100/25 MG /DAILY
     Route: 048
  6. FOSAMAX [Concomitant]
     Indication: BONE DISORDER
     Route: 048
  7. MELOXICAM [Concomitant]
     Indication: RHEUMATOID ARTHRITIS
     Route: 048
  8. SANDOZ FENTANYL MATRIX TRANSDERMAL SYSTEM [Suspect]
     Indication: RHEUMATOID ARTHRITIS
     Route: 062
  9. ANASTROZOLE [Concomitant]
     Indication: NEOPLASM MALIGNANT
     Route: 048
  10. SERTRALINE [Concomitant]
     Indication: DEPRESSION
     Route: 048
  11. SIMVASTATIN [Concomitant]
     Indication: BLOOD PRESSURE
     Route: 048

REACTIONS (3)
  - DRUG DOSE OMISSION [None]
  - HYPOVENTILATION [None]
  - DYSPNOEA [None]
